FAERS Safety Report 5707964-4 (Version None)
Quarter: 2008Q2

REPORT INFORMATION
  Report Type: 
  Country: None (occurrence: None)
  Receive Date: 20080417
  Receipt Date: 20080411
  Transmission Date: 20081010
  Serious: Yes (Other)
  Sender: FDA-Public Use
  Company Number: PHHY2008JP01682

PATIENT
  Age: 60 Year
  Sex: Female
  Weight: 46 kg

DRUGS (5)
  1. NAVELBINE [Concomitant]
     Indication: METASTASES TO BONE
     Dosage: 27 MG
     Route: 042
     Dates: start: 20070514
  2. LENDORMIN [Concomitant]
     Dosage: 0.25 MG
     Route: 048
     Dates: start: 20070305
  3. FEMARA [Concomitant]
     Indication: METASTASES TO BONE
     Dosage: 2.5MG
     Route: 048
     Dates: start: 20070305
  4. AREDIA [Suspect]
     Indication: METASTASES TO BONE
     Dosage: 90 MG QMO
     Route: 042
     Dates: start: 20051031, end: 20060219
  5. ZOMETA [Suspect]
     Indication: METASTASES TO BONE
     Dosage: 4 MG, UNK
     Route: 042
     Dates: start: 20060220, end: 20080107

REACTIONS (12)
  - ASPARTATE AMINOTRANSFERASE INCREASED [None]
  - BLOOD LACTATE DEHYDROGENASE INCREASED [None]
  - BONE DISORDER [None]
  - GINGIVAL RECESSION [None]
  - HAEMATOCRIT DECREASED [None]
  - HAEMOGLOBIN DECREASED [None]
  - IMPAIRED HEALING [None]
  - OSTEOMYELITIS [None]
  - OSTEONECROSIS [None]
  - PERIODONTAL DISEASE [None]
  - RED BLOOD CELL COUNT DECREASED [None]
  - TOOTH EXTRACTION [None]
